FAERS Safety Report 11155540 (Version 1)
Quarter: 2015Q2

REPORT INFORMATION
  Report Type: Spontaneous
  Country: FR (occurrence: FR)
  Receive Date: 20150602
  Receipt Date: 20150602
  Transmission Date: 20150821
  Serious: Yes (Hospitalization)
  Sender: FDA-Public Use
  Company Number: FR-PFIZER INC-2015180887

PATIENT
  Age: 32 Year
  Sex: Female

DRUGS (2)
  1. XANAX [Suspect]
     Active Substance: ALPRAZOLAM
     Indication: DEPRESSION
     Dosage: UNK
  2. XANAX [Suspect]
     Active Substance: ALPRAZOLAM
     Dosage: 11.5 ^MG/KG^, SINGLE (45 TABLETS)
     Dates: start: 20150102, end: 20150102

REACTIONS (9)
  - Suicide attempt [Unknown]
  - Somnolence [Recovered/Resolved]
  - Toxicity to various agents [Unknown]
  - Hypotonia [Recovered/Resolved]
  - Intentional overdose [Unknown]
  - Depressed level of consciousness [Recovered/Resolved]
  - Disease recurrence [Unknown]
  - Sluggishness [Unknown]
  - Miosis [Recovered/Resolved]

NARRATIVE: CASE EVENT DATE: 20150102
